FAERS Safety Report 15567527 (Version 1)
Quarter: 2018Q4

REPORT INFORMATION
  Report Type: Spontaneous
  Country: ES (occurrence: ES)
  Receive Date: 20181030
  Receipt Date: 20181030
  Transmission Date: 20190205
  Serious: Yes (Other)
  Sender: FDA-Public Use
  Company Number: ES-MYLANLABS-2018M1080464

PATIENT
  Age: 11 Year
  Sex: Male

DRUGS (6)
  1. ETHAMBUTOL [Concomitant]
     Active Substance: ETHAMBUTOL HYDROCHLORIDE
     Indication: TUBERCULOSIS
  2. AMIKACIN. [Concomitant]
     Active Substance: AMIKACIN
     Indication: TUBERCULOSIS
  3. AZATHIOPRINE. [Suspect]
     Active Substance: AZATHIOPRINE
     Indication: IMMUNOSUPPRESSANT DRUG THERAPY
  4. LINEZOLID. [Suspect]
     Active Substance: LINEZOLID
     Indication: PULMONARY TUBERCULOSIS
     Dosage: 30 MG/KG, QD
  5. LEVOFLOXACIN. [Concomitant]
     Active Substance: LEVOFLOXACIN
     Indication: TUBERCULOSIS
  6. MESALAZINE [Concomitant]
     Active Substance: MESALAMINE
     Indication: IMMUNOSUPPRESSANT DRUG THERAPY

REACTIONS (4)
  - Rash maculo-papular [Unknown]
  - Vomiting [Unknown]
  - Gastrointestinal disorder [Unknown]
  - Angioedema [Unknown]
